FAERS Safety Report 6732428-9 (Version None)
Quarter: 2010Q2

REPORT INFORMATION
  Report Type: 
  Country: None (occurrence: None)
  Receive Date: 20100519
  Receipt Date: 20100518
  Transmission Date: 20101027
  Serious: Yes (Hospitalization)
  Sender: FDA-Public Use
  Company Number: FR-ROCHE-703565

PATIENT
  Sex: Male

DRUGS (11)
  1. RIVOTRIL [Suspect]
     Indication: PSYCHIATRIC SYMPTOM
     Dosage: STRENGTH: 2.5 MG/ML; FORM: SOLUTION IN DROP
     Route: 048
     Dates: start: 20100123
  2. THERALENE [Suspect]
     Indication: PSYCHIATRIC SYMPTOM
     Dosage: FOMR: SOLUTION IN DROP
     Route: 048
     Dates: start: 20100123
  3. LOXAPAC [Suspect]
     Indication: PSYCHIATRIC SYMPTOM
     Dosage: FOMR: COATED TABLET
     Route: 048
     Dates: start: 20100123
  4. DEPAKOTE [Suspect]
     Indication: PSYCHIATRIC SYMPTOM
     Dosage: FOR SEVERAL MONTHS
     Route: 048
  5. DEPAKOTE [Suspect]
     Route: 048
     Dates: start: 20100123
  6. DEPAKOTE [Suspect]
     Route: 048
  7. EFFEXOR XR [Suspect]
     Indication: PSYCHIATRIC SYMPTOM
     Route: 048
     Dates: start: 20100123
  8. CLOZAPINE [Suspect]
     Indication: PSYCHIATRIC SYMPTOM
     Route: 048
  9. CLOZAPINE [Suspect]
     Dosage: DOSAGE REDUCED
     Route: 048
     Dates: start: 20100123
  10. CLOZAPINE [Suspect]
     Route: 048
  11. CLOPIXOL [Concomitant]
     Dosage: TESTED ON 19 JAN

REACTIONS (2)
  - ALTERED STATE OF CONSCIOUSNESS [None]
  - RESPIRATORY DEPRESSION [None]
